FAERS Safety Report 21439564 (Version 1)
Quarter: 2022Q4

REPORT INFORMATION
  Report Type: Spontaneous
  Country: US (occurrence: None)
  Receive Date: 20221010
  Receipt Date: 20221010
  Transmission Date: 20230113
  Serious: Yes (Hospitalization)
  Sender: FDA-Public Use
  Company Number: None

PATIENT
  Age: 76 Year
  Sex: Male
  Weight: 126.1 kg

DRUGS (17)
  1. ABIRATERONE [Suspect]
     Active Substance: ABIRATERONE
     Indication: Prostate cancer
     Dosage: FREQUENCY : DAILY;?
     Route: 048
     Dates: start: 202205
  2. ASPIRIN [Concomitant]
     Active Substance: ASPIRIN
  3. AMIODARONE [Concomitant]
     Active Substance: AMIODARONE
  4. ATORVASTATIN [Concomitant]
     Active Substance: ATORVASTATIN
  5. CALCIUM [Concomitant]
     Active Substance: CALCIUM
  6. CLONAZEPAM [Concomitant]
     Active Substance: CLONAZEPAM
  7. FISH OIL [Concomitant]
     Active Substance: FISH OIL
  8. FUROSEMIDE [Concomitant]
     Active Substance: FUROSEMIDE
  9. VITAMIN C [Concomitant]
     Active Substance: ASCORBIC ACID
  10. LAMOTRIGINE [Concomitant]
     Active Substance: LAMOTRIGINE
  11. LISINOPRIL [Concomitant]
     Active Substance: LISINOPRIL
  12. METOPROLOL [Concomitant]
     Active Substance: METOPROLOL
  13. MULTIPLEVITAMIN [Concomitant]
  14. NITROSTAT [Concomitant]
     Active Substance: NITROGLYCERIN
  15. PAROXETINE [Concomitant]
     Active Substance: PAROXETINE
  16. VITAMIN D3 [Concomitant]
     Active Substance: CHOLECALCIFEROL
  17. VITAMIN B [Concomitant]
     Active Substance: VITAMIN B

REACTIONS (4)
  - Confusional state [None]
  - Asthenia [None]
  - Treatment noncompliance [None]
  - Blood creatinine abnormal [None]
